FAERS Safety Report 5486744-1 (Version None)
Quarter: 2007Q4

REPORT INFORMATION
  Report Type: 
  Country: None (occurrence: None)
  Receive Date: 20071012
  Receipt Date: 20071012
  Transmission Date: 20080405
  Serious: No
  Sender: FDA-Public Use
  Company Number: None

PATIENT
  Age: 37 Year
  Sex: Female

DRUGS (2)
  1. DEXFERRUM [Suspect]
     Indication: ANAEMIA
     Dosage: 2CC DAILY IV
     Route: 042
     Dates: start: 20070905
  2. DEXFERRUM [Suspect]
     Indication: ANAEMIA
     Dosage: 2CC DAILY IV
     Route: 042
     Dates: start: 20070906

REACTIONS (2)
  - BACK PAIN [None]
  - DYSPNOEA [None]
